FAERS Safety Report 23989374 (Version 4)
Quarter: 2025Q1

REPORT INFORMATION
  Report Type: Spontaneous
  Country: US (occurrence: US)
  Receive Date: 20240619
  Receipt Date: 20250115
  Transmission Date: 20250408
  Serious: Yes (Other)
  Sender: BAYER HEALTHCARE PHARMACEUTICALS INC.
  Company Number: US-BAYER-2024A086649

PATIENT
  Age: 32 Year
  Sex: Male

DRUGS (4)
  1. JIVI [Suspect]
     Active Substance: DAMOCTOCOG ALFA PEGOL
     Indication: Factor VIII deficiency
     Dosage: 3000 IU, BIW  AS NEEDED FOR BREAKTHROUGH BLEEDING.
     Route: 042
     Dates: start: 202002
  2. JIVI [Suspect]
     Active Substance: DAMOCTOCOG ALFA PEGOL
     Indication: Factor VIII deficiency
     Dosage: JIVI INJ 3000 UNITS/ 3000 UNITS SLOW IV PUSH BIW PRN FOR BREAKTHROUGH BLEEDING
     Route: 042
     Dates: start: 202002
  3. JIVI [Suspect]
     Active Substance: DAMOCTOCOG ALFA PEGOL
     Indication: Factor VIII deficiency
     Dosage: JIVI 2000 UNITS/INFUSE 2000 UNITS SLOW IV PUSH BIW PRN FOR BREAKTHROUGH BLEEDING
     Route: 042
     Dates: start: 202103
  4. JIVI [Suspect]
     Active Substance: DAMOCTOCOG ALFA PEGOL
     Indication: Factor VIII deficiency
     Dosage: JIVI 1000 UNITS/INFUSE 1000 UNITS SLOW IV PUSH BIW PRN FOR BREAKTHROUGH BLEEDING
     Route: 042
     Dates: start: 202103

REACTIONS (6)
  - Haemarthrosis [None]
  - Traumatic haemorrhage [None]
  - Arthralgia [None]
  - Contusion [None]
  - Haemarthrosis [None]
  - Arthralgia [None]

NARRATIVE: CASE EVENT DATE: 20240612
